FAERS Safety Report 12289797 (Version 1)
Quarter: 2016Q2

REPORT INFORMATION
  Report Type: Report from Study
  Country: JP (occurrence: JP)
  Receive Date: 20160421
  Receipt Date: 20160421
  Transmission Date: 20160815
  Serious: Yes (Other)
  Sender: FDA-Public Use
  Company Number: PHJP2016JP009689

PATIENT
  Sex: Male

DRUGS (2)
  1. FARYDAK [Suspect]
     Active Substance: PANOBINOSTAT
     Indication: PLASMA CELL MYELOMA
     Dosage: UNK
     Route: 048
  2. AMITIZA [Concomitant]
     Active Substance: LUBIPROSTONE
     Indication: CONSTIPATION
     Dosage: 2 DF, UNK
     Route: 048
     Dates: start: 20151211

REACTIONS (10)
  - Vomiting [Unknown]
  - Dehydration [Unknown]
  - Hypotension [Unknown]
  - Orthostatic hypotension [Unknown]
  - Bone marrow failure [Unknown]
  - Infection [Unknown]
  - Nausea [Unknown]
  - Diarrhoea [Unknown]
  - Loss of consciousness [Unknown]
  - Syncope [Unknown]
